FAERS Safety Report 14475561 (Version 1)
Quarter: 2018Q1

REPORT INFORMATION
  Report Type: Spontaneous
  Country: GB (occurrence: FR)
  Receive Date: 20180201
  Receipt Date: 20180201
  Transmission Date: 20180509
  Serious: Yes (Hospitalization)
  Sender: FDA-Public Use
  Company Number: FR-FRESENIUS KABI-FK201800958

PATIENT
  Age: 56 Year
  Sex: Female

DRUGS (2)
  1. AVASTIN [Suspect]
     Active Substance: BEVACIZUMAB
     Indication: MALIGNANT MELANOMA
     Route: 042
     Dates: start: 201703, end: 20171009
  2. PACLITAXEL (MANUFACTURER UNKNOWN) [Suspect]
     Active Substance: PACLITAXEL
     Indication: MALIGNANT MELANOMA
     Route: 042
     Dates: start: 201703, end: 20171009

REACTIONS (1)
  - Glossitis [Not Recovered/Not Resolved]

NARRATIVE: CASE EVENT DATE: 201707
